FAERS Safety Report 7988655-6 (Version None)
Quarter: 2011Q4

REPORT INFORMATION
  Report Type: 
  Country: None (occurrence: None)
  Receive Date: 20111218
  Receipt Date: 20111129
  Transmission Date: 20120403
  Serious: No
  Sender: FDA-Public Use
  Company Number: US-ROXANE LABORATORIES, INC.-2011-RO-01602RO

PATIENT
  Sex: Male

DRUGS (2)
  1. METHADONE HCL [Suspect]
     Dosage: 200 MG
     Route: 048
  2. MORPHINE [Suspect]
     Route: 048

REACTIONS (3)
  - DIZZINESS [None]
  - PRODUCT COMMINGLING [None]
  - HEADACHE [None]
